FAERS Safety Report 22640333 (Version 1)
Quarter: 2023Q2

REPORT INFORMATION
  Report Type: Spontaneous
  Country: US (occurrence: None)
  Receive Date: 20230623
  Receipt Date: 20230623
  Transmission Date: 20230721
  Serious: Yes (Death)
  Sender: FDA-Public Use
  Company Number: None

PATIENT
  Age: 46 Year
  Sex: Female
  Weight: 124.51 kg

DRUGS (29)
  1. KISQALI [Suspect]
     Active Substance: RIBOCICLIB
     Indication: Breast cancer female
     Dosage: OTHER FREQUENCY : 21D ON 7D OFF;?
     Route: 048
     Dates: start: 202303
  2. ALBUTEROL [Concomitant]
     Active Substance: ALBUTEROL
  3. ALLERGY RELIEF [Concomitant]
  4. AMOXICILLIN-POT [Concomitant]
  5. CLAVULANIC ACID [Concomitant]
     Active Substance: CLAVULANIC ACID
  6. BISACODYL [Concomitant]
     Active Substance: BISACODYL
  7. CALCIUM [Concomitant]
     Active Substance: CALCIUM
  8. CHLORHEXIDINE [Concomitant]
     Active Substance: CHLORHEXIDINE
  9. CLOBETASOL [Concomitant]
     Active Substance: CLOBETASOL
  10. CYCLOBENZAPRINE [Concomitant]
     Active Substance: CYCLOBENZAPRINE
  11. DEXAMETHASONE [Concomitant]
     Active Substance: DEXAMETHASONE
  12. DEXILANT [Concomitant]
     Active Substance: DEXLANSOPRAZOLE
  13. DILTIAZEM [Concomitant]
     Active Substance: DILTIAZEM
  14. DOCUSATE SODIUM [Concomitant]
     Active Substance: DOCUSATE SODIUM
  15. DULOXETINE [Concomitant]
     Active Substance: DULOXETINE
  16. FENTANYL [Concomitant]
     Active Substance: FENTANYL
  17. FUROSEMIDE [Concomitant]
     Active Substance: FUROSEMIDE
  18. LATANOPROST [Concomitant]
     Active Substance: LATANOPROST
  19. LEVOFLOXACIN [Concomitant]
     Active Substance: LEVOFLOXACIN
  20. LOPERAMIDE [Concomitant]
     Active Substance: LOPERAMIDE
  21. METHOCARBAMOL [Concomitant]
     Active Substance: METHOCARBAMOL
  22. OMEPRAZOLE [Concomitant]
     Active Substance: OMEPRAZOLE
  23. ONDANSETRON [Concomitant]
     Active Substance: ONDANSETRON
  24. PANTROPRAZOLE [Concomitant]
  25. PREDNISONE [Concomitant]
     Active Substance: PREDNISONE
  26. ROPINIROLE [Concomitant]
     Active Substance: ROPINIROLE
  27. TOBREX [Concomitant]
  28. TOLTERODINE [Concomitant]
     Active Substance: TOLTERODINE
  29. VITAMIN D NOS [Concomitant]
     Active Substance: VITAMIN D NOS

REACTIONS (1)
  - Death [None]

NARRATIVE: CASE EVENT DATE: 20230601
